FAERS Safety Report 14580946 (Version 2)
Quarter: 2018Q1

REPORT INFORMATION
  Report Type: Report from Study
  Country: BE (occurrence: BE)
  Receive Date: 20180228
  Receipt Date: 20180320
  Transmission Date: 20180509
  Serious: Yes (Hospitalization)
  Sender: FDA-Public Use
  Company Number: BE-ROCHE-2077978

PATIENT
  Age: 62 Year
  Sex: Female
  Weight: 67.3 kg

DRUGS (7)
  1. COBIMETINIB. [Suspect]
     Active Substance: COBIMETINIB
     Indication: BREAST CANCER METASTATIC
     Dosage: DATE OF MOST RECENT DOSE: 17/FEB/2018, 60 MG
     Route: 048
     Dates: start: 20170531
  2. IMODIUM [Concomitant]
     Active Substance: LOPERAMIDE HYDROCHLORIDE
     Indication: DIARRHOEA
     Route: 048
     Dates: start: 20170602
  3. ROZEX (BELGIUM) [Concomitant]
     Indication: RASH
     Dosage: 2 OTHER
     Route: 061
     Dates: start: 20170626
  4. ATEZOLIZUMAB. [Suspect]
     Active Substance: ATEZOLIZUMAB
     Indication: BREAST CANCER METASTATIC
     Dosage: DATE OF MOST RECENT DOSE: 05/FEB/2018, 840 MG
     Route: 042
     Dates: start: 20170529
  5. BURINEX [Concomitant]
     Active Substance: BUMETANIDE
     Indication: OEDEMA PERIPHERAL
     Route: 048
     Dates: start: 20171206
  6. INNOHEP [Concomitant]
     Active Substance: TINZAPARIN SODIUM
     Indication: PULMONARY EMBOLISM
     Route: 058
     Dates: start: 20171008
  7. PACLITAXEL. [Suspect]
     Active Substance: PACLITAXEL
     Indication: BREAST CANCER METASTATIC
     Dosage: ON DAY 1, DAY 8, AND DAY 15 OF EACH 28-DAY CYCLE?DATE OF MOST RECENT DOSE: 24/OCT/2017, 143 MG
     Route: 042
     Dates: start: 20170529

REACTIONS (1)
  - Mucosal inflammation [Not Recovered/Not Resolved]

NARRATIVE: CASE EVENT DATE: 20180217
